FAERS Safety Report 8383041 (Version 3)
Quarter: 2012Q4

REPORT INFORMATION
  Report Type: 
  Country: US (occurrence: US)
  Receive Date: 20120201
  Receipt Date: 20120911
  Transmission Date: 20130627
  Serious: Yes (Hospitalization)
  Sender: FDA-Public Use
  Company Number: US-PFIZER INC-2012022420

PATIENT
  Age: 23 Year
  Sex: Male
  Weight: 74.83 kg

DRUGS (1)
  1. BENEFIX [Suspect]
     Indication: FACTOR IX DEFICIENCY
     Dosage: 6000 units, alternate day
     Route: 058
     Dates: start: 1997

REACTIONS (2)
  - Muscle haemorrhage [Recovering/Resolving]
  - Haemarthrosis [Unknown]
